FAERS Safety Report 21299370 (Version 2)
Quarter: 2022Q4

REPORT INFORMATION
  Report Type: Spontaneous
  Country: US (occurrence: US)
  Receive Date: 20220906
  Receipt Date: 20221203
  Transmission Date: 20230113
  Serious: No
  Sender: FDA-Public Use
  Company Number: US-NOVARTISTESTPH-NVSC2022US197868

PATIENT

DRUGS (1)
  1. KESIMPTA [Suspect]
     Active Substance: OFATUMUMAB
     Indication: Product used for unknown indication
     Dosage: 20 MG (EXTENDING DOSING INTERVAL MORE THAN 1 MONTH, BUT LESS THAN 2 MONTHS)
     Route: 058

REACTIONS (1)
  - Upper respiratory tract infection [Not Recovered/Not Resolved]
